FAERS Safety Report 8407346-0 (Version None)
Quarter: 2012Q2

REPORT INFORMATION
  Report Type: 
  Country: None (occurrence: None)
  Receive Date: 20120604
  Receipt Date: 20120529
  Transmission Date: 20120825
  Serious: Yes (Hospitalization)
  Sender: FDA-Public Use
  Company Number: US-B.I. PHARMACEUTICALS,INC./RIDGEFIELD-2011-BP-00042BP

PATIENT
  Age: 83 Year
  Sex: Male

DRUGS (6)
  1. NORVASC [Concomitant]
     Indication: HYPERTENSION
  2. PRADAXA [Suspect]
     Indication: ATRIAL FIBRILLATION
     Dosage: 300 MG
     Route: 048
     Dates: start: 20101101
  3. PRADAXA [Suspect]
     Dosage: 150 MG
     Route: 048
     Dates: start: 20100101
  4. NIASPAN [Concomitant]
     Indication: BLOOD TRIGLYCERIDES INCREASED
  5. SIMVASTATIN [Concomitant]
     Indication: BLOOD CHOLESTEROL INCREASED
  6. TOPROL-XL [Concomitant]
     Indication: HYPERTENSION

REACTIONS (2)
  - GASTROINTESTINAL HAEMORRHAGE [None]
  - INTESTINAL HAEMORRHAGE [None]
